FAERS Safety Report 11787825 (Version 2)
Quarter: 2015Q4

REPORT INFORMATION
  Report Type: Spontaneous
  Country: US (occurrence: None)
  Receive Date: 20151130
  Receipt Date: 20151221
  Transmission Date: 20160305
  Serious: Yes (Other)
  Sender: FDA-Public Use
  Company Number: US-MDT-ADR-2015-02251

PATIENT
  Age: 36 Year
  Sex: Male

DRUGS (2)
  1. CLONIDINE INTRATHECAL 500 MCG/ML [Suspect]
     Active Substance: CLONIDINE
     Dosage: 311.77 MCG/DAY
  2. BACLOFEN INTRATHECAL 400 MCG/ML [Suspect]
     Active Substance: BACLOFEN
     Indication: PAIN
     Dosage: 249.42 MCG/DAY

REACTIONS (10)
  - Nausea [None]
  - Weight increased [None]
  - Therapy cessation [None]
  - Pain [None]
  - Clumsiness [None]
  - Drug withdrawal syndrome [None]
  - Headache [None]
  - Hyperhidrosis [None]
  - Lethargy [None]
  - Dysarthria [None]
